FAERS Safety Report 25504436 (Version 1)
Quarter: 2025Q3

REPORT INFORMATION
  Report Type: Spontaneous
  Country: US (occurrence: None)
  Receive Date: 20250701
  Receipt Date: 20250701
  Transmission Date: 20251021
  Serious: Yes (Hospitalization)
  Sender: FDA-CTU
  Company Number: None

PATIENT
  Age: 35 Year
  Sex: Male
  Weight: 63.45 kg

DRUGS (3)
  1. DOXYCYCLINE [Suspect]
     Active Substance: DOXYCYCLINE
     Indication: Lyme disease
     Dosage: FREQUENCY : TWICE A DAY;?
     Route: 048
     Dates: start: 20250219
  2. Nature made multi vitamin [Concomitant]
  3. Nature made vitamin D [Concomitant]

REACTIONS (8)
  - Anxiety [None]
  - Depression [None]
  - Anxiety [None]
  - Panic attack [None]
  - Near death experience [None]
  - Palpitations [None]
  - Arthropod bite [None]
  - Arthropod bite [None]

NARRATIVE: CASE EVENT DATE: 20250518
